FAERS Safety Report 21947934 (Version 1)
Quarter: 2023Q1

REPORT INFORMATION
  Report Type: Report from Study
  Country: CO (occurrence: CO)
  Receive Date: 20230203
  Receipt Date: 20230203
  Transmission Date: 20230418
  Serious: Yes (Death, Hospitalization, Other)
  Sender: FDA-Public Use
  Company Number: CO-ABBVIE-4268589

PATIENT
  Sex: Female
  Weight: 68 kg

DRUGS (3)
  1. VENCLEXTA [Suspect]
     Active Substance: VENETOCLAX
     Indication: Acute myeloid leukaemia
     Route: 048
     Dates: end: 20230106
  2. VENCLEXTA [Suspect]
     Active Substance: VENETOCLAX
     Indication: Acute myeloid leukaemia
     Dosage: START DATE-2022
     Route: 048
     Dates: end: 20221205
  3. VENCLEXTA [Suspect]
     Active Substance: VENETOCLAX
     Indication: Acute myeloid leukaemia
     Dosage: LAST ADMIN DATE WAS 2022
     Route: 048
     Dates: start: 20220816

REACTIONS (8)
  - Death [Fatal]
  - Bone marrow disorder [Not Recovered/Not Resolved]
  - Leukopenia [Recovering/Resolving]
  - Pyrexia [Recovering/Resolving]
  - Neutropenia [Recovering/Resolving]
  - Acute myeloid leukaemia recurrent [Not Recovered/Not Resolved]
  - Asthenia [Recovering/Resolving]
  - Haemoglobinopathy [Recovering/Resolving]

NARRATIVE: CASE EVENT DATE: 20230101
